FAERS Safety Report 22303442 (Version 1)
Quarter: 2023Q2

REPORT INFORMATION
  Report Type: Spontaneous
  Country: US (occurrence: US)
  Receive Date: 20230510
  Receipt Date: 20230510
  Transmission Date: 20230721
  Serious: No
  Sender: FDA-Public Use
  Company Number: US-BAYER-2023A064650

PATIENT
  Age: 72 Year
  Sex: Male

DRUGS (2)
  1. ASTEPRO [Suspect]
     Active Substance: AZELASTINE HYDROCHLORIDE
     Indication: Hypersensitivity
     Dosage: ONE OR TWO SPRAY PER NOSTRIL TWICE A DAY
     Route: 045
     Dates: end: 202305
  2. ASTEPRO [Suspect]
     Active Substance: AZELASTINE HYDROCHLORIDE
     Indication: Nasopharyngitis
     Dosage: ONE OR TWO SPRAY PER NOSTRIL TWICE A DAY
     Route: 045
     Dates: end: 202305

REACTIONS (1)
  - Drug ineffective [Not Recovered/Not Resolved]
